FAERS Safety Report 4869845-8 (Version None)
Quarter: 2005Q4

REPORT INFORMATION
  Report Type: 
  Country: None (occurrence: None)
  Receive Date: 20051230
  Receipt Date: 20051220
  Transmission Date: 20060501
  Serious: Yes (Hospitalization)
  Sender: FDA-Public Use
  Company Number: US-MERCK-0512USA03470

PATIENT
  Age: 45 Year
  Sex: Female
  Weight: 58 kg

DRUGS (5)
  1. VIOXX [Suspect]
     Indication: OSTEOARTHRITIS
     Route: 048
     Dates: start: 20001116, end: 20040901
  2. VIOXX [Suspect]
     Indication: SYSTEMIC LUPUS ERYTHEMATOSUS
     Route: 048
     Dates: start: 20001116, end: 20040901
  3. MAXZIDE [Concomitant]
     Route: 048
  4. COMBIVENT [Concomitant]
     Route: 055
  5. LEVOXYL [Concomitant]
     Route: 048

REACTIONS (5)
  - ACUTE SINUSITIS [None]
  - CEREBRAL ARTERIOSCLEROSIS [None]
  - LACUNAR INFARCTION [None]
  - OVARIAN CYST [None]
  - VAGINAL HAEMORRHAGE [None]
